FAERS Safety Report 4543239-7 (Version None)
Quarter: 2004Q4

REPORT INFORMATION
  Report Type: 
  Country: None (occurrence: None)
  Receive Date: 20041229
  Receipt Date: 20041214
  Transmission Date: 20050328
  Serious: Yes (Hospitalization)
  Sender: FDA-Public Use
  Company Number: 2004-05243

PATIENT
  Age: 56 Year
  Sex: Male

DRUGS (2)
  1. BISOPROLOL FUMARATE/HYDROCHLOROTHIAZIDE (WATSON LABORATORIES)(HYDROCHL [Suspect]
     Dosage: 2.5 MG DAILY ORAL
     Route: 048
  2. ATORVASTATIN [Concomitant]

REACTIONS (1)
  - QUADRIPARESIS [None]
